FAERS Safety Report 20800436 (Version 1)
Quarter: 2022Q2

REPORT INFORMATION
  Report Type: Spontaneous
  Country: JP (occurrence: JP)
  Receive Date: 20220509
  Receipt Date: 20220509
  Transmission Date: 20220721
  Serious: Yes (Hospitalization, Other)
  Sender: FDA-Public Use
  Company Number: JP-ATLANTIDE PHARMACEUTICALS AG-2022ATL000020

PATIENT
  Age: 78 Year
  Sex: Male
  Weight: 55 kg

DRUGS (1)
  1. CEFTRIAXONE [Suspect]
     Active Substance: CEFTRIAXONE
     Indication: Urinary tract infection
     Dosage: 2 GRAM, QD
     Route: 042

REACTIONS (1)
  - Toxic encephalopathy [Recovered/Resolved]
